FAERS Safety Report 6356305-0 (Version None)
Quarter: 2009Q3

REPORT INFORMATION
  Report Type: 
  Country: None (occurrence: None)
  Receive Date: 20090915
  Receipt Date: 20090911
  Transmission Date: 20100115
  Serious: Yes (Hospitalization)
  Sender: FDA-Public Use
  Company Number: GB-BAYER-200931854GPV

PATIENT
  Age: 83 Year
  Sex: Male

DRUGS (7)
  1. SORAFENIB [Suspect]
     Indication: DRUG USE FOR UNKNOWN INDICATION
     Dates: start: 20090311
  2. BENDROFLUAZINE [Concomitant]
     Dosage: AS USED: 2-5 MG
     Route: 048
     Dates: end: 20090908
  3. AMLODIPINE [Concomitant]
     Route: 048
     Dates: start: 20090327, end: 20090908
  4. SIMVASTATIN [Concomitant]
     Route: 048
  5. ALFUZOSIN HCL [Concomitant]
     Route: 048
  6. ASPIRIN [Concomitant]
  7. PYRIDOXINE [Concomitant]
     Dates: start: 20090422

REACTIONS (1)
  - ATRIAL FIBRILLATION [None]
